FAERS Safety Report 8439777-7 (Version None)
Quarter: 2012Q2

REPORT INFORMATION
  Report Type: 
  Country: None (occurrence: None)
  Receive Date: 20120615
  Receipt Date: 20120606
  Transmission Date: 20120825
  Serious: Yes (Hospitalization)
  Sender: FDA-Public Use
  Company Number: US-JNJFOC-20120515248

PATIENT
  Sex: Female
  Weight: 56 kg

DRUGS (7)
  1. PRILOSEC [Concomitant]
  2. REMICADE [Suspect]
     Route: 042
     Dates: start: 20120426
  3. ANTIBIOTICS [Concomitant]
  4. CORTIFOAM [Concomitant]
  5. PREDNISONE TAB [Concomitant]
  6. REMICADE [Suspect]
     Indication: COLITIS ULCERATIVE
     Route: 042
     Dates: start: 20120404
  7. ROWASA [Concomitant]

REACTIONS (1)
  - COLITIS ULCERATIVE [None]
